FAERS Safety Report 7515403-6 (Version None)
Quarter: 2011Q2

REPORT INFORMATION
  Report Type: 
  Country: None (occurrence: None)
  Receive Date: 20110601
  Receipt Date: 20110527
  Transmission Date: 20111010
  Serious: Yes (Hospitalization)
  Sender: FDA-Public Use
  Company Number: JP-B.I. PHARMACEUTICALS,INC./RIDGEFIELD-2011-BP-12091NB

PATIENT
  Age: 68 Year
  Sex: Male

DRUGS (10)
  1. PRADAXA [Suspect]
     Dosage: 220 MG
     Route: 048
     Dates: start: 20110414, end: 20110427
  2. LANSOPRAZOLE [Concomitant]
     Dosage: 15 MG
     Route: 048
     Dates: start: 20110414
  3. LANIRAPID [Concomitant]
     Dosage: 0.05 MG
     Route: 048
     Dates: start: 20110414
  4. GLACTIV [Concomitant]
     Dosage: 50 MG
     Route: 048
     Dates: start: 20110414
  5. KAMAG G [Concomitant]
     Dosage: 1.5 G
     Route: 048
     Dates: start: 20110414
  6. ASPIRIN [Concomitant]
     Dosage: 100 MG
     Route: 048
     Dates: start: 20110414
  7. CARVEDILOL [Concomitant]
     Dosage: 20 MG
     Route: 048
     Dates: start: 20110421
  8. MICARDIS [Concomitant]
     Dosage: 20 MG
     Route: 048
     Dates: start: 20110414
  9. CIBENOL [Concomitant]
     Dosage: 200 MG
     Route: 048
     Dates: start: 20110414
  10. CARVEDILOL [Concomitant]
     Dosage: 40 MG
     Route: 048
     Dates: start: 20110414, end: 20110420

REACTIONS (3)
  - DIZZINESS [None]
  - DECREASED APPETITE [None]
  - MALAISE [None]
